FAERS Safety Report 12312796 (Version 1)
Quarter: 2016Q2

REPORT INFORMATION
  Report Type: Spontaneous
  Country: US (occurrence: None)
  Receive Date: 20160427
  Receipt Date: 20160427
  Transmission Date: 20160815
  Serious: Yes (Other)
  Sender: FDA-Public Use
  Company Number: None

PATIENT
  Age: 49 Year
  Sex: Female

DRUGS (1)
  1. CLEAN AND CLEAR ADVANTAGE ACNE CONTROL 3 IN 1 FOAMING WASH [Suspect]
     Active Substance: SALICYLIC ACID
     Indication: ACNE
     Dosage: AT BEDTIME APPLIED TO A SURFACE, USUALLY THE SKIN
     Route: 061
     Dates: start: 20160425, end: 20160426

REACTIONS (3)
  - Swelling face [None]
  - Feeling abnormal [None]
  - Disorientation [None]

NARRATIVE: CASE EVENT DATE: 20160426
